FAERS Safety Report 9106775 (Version 2)
Quarter: 2013Q1

REPORT INFORMATION
  Report Type: Spontaneous
  Country: DE (occurrence: DE)
  Receive Date: 20130222
  Receipt Date: 20130226
  Transmission Date: 20140127
  Serious: No
  Sender: FDA-Public Use
  Company Number: DE-UCBSA-078473

PATIENT
  Sex: Male

DRUGS (3)
  1. VIMPAT [Suspect]
     Dosage: UNSPECIFIED DOSE AND FREQUENCY
  2. KEPPRA [Suspect]
     Dosage: SOLUTION FOR ORAL ADMINISTRATION
  3. KEPPRA [Suspect]

REACTIONS (3)
  - Upper respiratory tract infection [Not Recovered/Not Resolved]
  - Drug administration error [Unknown]
  - Dysphagia [Unknown]
